FAERS Safety Report 9069216 (Version 1)
Quarter: 2013Q1

REPORT INFORMATION
  Report Type: Report from Study
  Country: US (occurrence: US)
  Receive Date: 20130131
  Receipt Date: 20130131
  Transmission Date: 20140127
  Serious: No
  Sender: FDA-Public Use
  Company Number: US-ABBOTT-12P-163-1001181-00

PATIENT
  Sex: Male
  Weight: 111.23 kg

DRUGS (6)
  1. HUMIRA [Suspect]
     Indication: PSORIASIS
     Route: 058
     Dates: start: 201112, end: 201201
  2. ENBREL [Concomitant]
     Indication: PSORIASIS
     Dates: start: 201203
  3. VITAMIN C [Concomitant]
     Indication: IMMUNE SYSTEM DISORDER
  4. VITAMIN D [Concomitant]
     Indication: IMMUNE SYSTEM DISORDER
  5. VITAMIN E [Concomitant]
     Indication: IMMUNE SYSTEM DISORDER
  6. MULTIPLE VITAMINS [Concomitant]
     Indication: IMMUNE SYSTEM DISORDER

REACTIONS (4)
  - Tooth impacted [Not Recovered/Not Resolved]
  - Oral infection [Recovered/Resolved]
  - Drug ineffective [Not Recovered/Not Resolved]
  - Wisdom teeth removal [Recovered/Resolved]
